FAERS Safety Report 6032669-2 (Version None)
Quarter: 2009Q1

REPORT INFORMATION
  Report Type: 
  Country: None (occurrence: None)
  Receive Date: 20090109
  Receipt Date: 20090106
  Transmission Date: 20090719
  Serious: Yes (Other)
  Sender: FDA-Public Use
  Company Number: US-JNJFOC-20090101215

PATIENT
  Sex: Female
  Weight: 52.62 kg

DRUGS (3)
  1. LEVAQUIN [Suspect]
     Indication: SINUSITIS
     Dosage: TOOK ONLY ONE DOSE
     Route: 048
  2. OMNICEF [Suspect]
     Dosage: TOOK 12 TABLETS FROM THIS BOTTLE
     Route: 048
  3. OMNICEF [Suspect]
     Indication: SINUSITIS
     Dosage: TOOK 2 TABLETS
     Route: 048

REACTIONS (3)
  - DYSPHAGIA [None]
  - PHARYNGEAL OEDEMA [None]
  - URTICARIA [None]
